FAERS Safety Report 5809869-7 (Version None)
Quarter: 2008Q3

REPORT INFORMATION
  Report Type: 
  Country: None (occurrence: None)
  Receive Date: 20080715
  Receipt Date: 20080708
  Transmission Date: 20090109
  Serious: Yes (Death, Hospitalization)
  Sender: FDA-Public Use
  Company Number: PL-JNJFOC-20080701820

PATIENT
  Age: 19 Year
  Sex: Male
  Weight: 62 kg

DRUGS (2)
  1. TOPAMAX [Suspect]
     Indication: ELECTROENCEPHALOGRAM ABNORMAL
     Route: 048
  2. RISPERIDONE [Concomitant]
     Indication: ELECTROENCEPHALOGRAM ABNORMAL
     Route: 048

REACTIONS (3)
  - AGITATION [None]
  - DEATH [None]
  - UNEVALUABLE EVENT [None]
